FAERS Safety Report 16929902 (Version 2)
Quarter: 2019Q4

REPORT INFORMATION
  Report Type: Spontaneous
  Country: AU (occurrence: AU)
  Receive Date: 20191017
  Receipt Date: 20191022
  Transmission Date: 20200122
  Serious: Yes (Other)
  Sender: FDA-Public Use
  Company Number: AU-PFIZER INC-2019446682

PATIENT

DRUGS (1)
  1. DILANTIN [Suspect]
     Active Substance: PHENYTOIN
     Dosage: 28MG (OR 4.7ML), UNK

REACTIONS (3)
  - Product prescribing error [Unknown]
  - Seizure [Not Recovered/Not Resolved]
  - Anticonvulsant drug level below therapeutic [Unknown]
